FAERS Safety Report 24763277 (Version 1)
Quarter: 2024Q4

REPORT INFORMATION
  Report Type: Spontaneous
  Country: RS (occurrence: RS)
  Receive Date: 20241222
  Receipt Date: 20241222
  Transmission Date: 20250114
  Serious: Yes (Hospitalization, Other)
  Sender: SS PHARMA LLC
  Company Number: RS-SSPHARMA-2024RSSSP00091

PATIENT
  Age: 23 Year
  Sex: Female

DRUGS (2)
  1. BROMOCRIPTINE MESYLATE [Suspect]
     Active Substance: BROMOCRIPTINE MESYLATE
     Indication: Product used for unknown indication
  2. ERYTHROMYCIN [Concomitant]
     Active Substance: ERYTHROMYCIN
     Indication: Antibiotic therapy

REACTIONS (1)
  - Porphyria acute [Unknown]
